FAERS Safety Report 4667868-5 (Version None)
Quarter: 2005Q2

REPORT INFORMATION
  Report Type: 
  Country: None (occurrence: None)
  Receive Date: 20050520
  Receipt Date: 20050222
  Transmission Date: 20051028
  Serious: Yes (Hospitalization)
  Sender: FDA-Public Use
  Company Number: US-ROCHE-396473

PATIENT
  Age: 19 Year
  Sex: Male
  Weight: 81.6 kg

DRUGS (1)
  1. ACCUTANE [Suspect]
     Route: 048
     Dates: start: 20041222, end: 20050215

REACTIONS (4)
  - DEPRESSED MOOD [None]
  - DEPRESSION [None]
  - OVERDOSE [None]
  - SUICIDE ATTEMPT [None]
